FAERS Safety Report 8443533-3 (Version None)
Quarter: 2012Q2

REPORT INFORMATION
  Report Type: 
  Country: None (occurrence: None)
  Receive Date: 20120605
  Receipt Date: 20120604
  Transmission Date: 20120825
  Serious: Yes (Life-Threatening, Hospitalization)
  Sender: FDA-Public Use
  Company Number: 2010SP043549

PATIENT
  Age: 49 Year
  Sex: Female

DRUGS (6)
  1. ZONISAMIDE [Concomitant]
  2. LOXOPROFEN (LOXOPROFEN SODIUM HYDRATE) [Concomitant]
  3. TEMODAL [Suspect]
     Indication: ANAPLASTIC ASTROCYTOMA
     Dosage: 75 MG/MG;QD;PO
     Route: 048
     Dates: start: 20100324, end: 20100504
  4. MUCOSTA [Concomitant]
  5. SULFAMETHOXAZOLE AND TRIMETHOPRIM [Concomitant]
  6. RADIOTHERAPY [Concomitant]

REACTIONS (2)
  - HEPATITIS B [None]
  - DISEASE RECURRENCE [None]
